FAERS Safety Report 4649230-4 (Version None)
Quarter: 2005Q2

REPORT INFORMATION
  Report Type: 
  Country: None (occurrence: None)
  Receive Date: 20050429
  Receipt Date: 20050418
  Transmission Date: 20051028
  Serious: Yes (Hospitalization, Other)
  Sender: FDA-Public Use
  Company Number: US-BRISTOL-MYERS SQUIBB COMPANY-12936563

PATIENT
  Age: 51 Year
  Sex: Male

DRUGS (12)
  1. DIDANOSINE [Suspect]
     Indication: HIV INFECTION
  2. VIREAD [Suspect]
     Indication: HIV INFECTION
     Route: 048
     Dates: start: 20020118
  3. KALETRA [Suspect]
     Indication: HIV INFECTION
  4. CARISOPRODOL [Concomitant]
  5. FENTANYL [Concomitant]
  6. FLUCONAZOLE [Concomitant]
  7. GLYBURIDE [Concomitant]
  8. PROMETHAZINE [Concomitant]
  9. RABEPRAZOLE SODIUM [Concomitant]
  10. BACTRIM [Concomitant]
  11. LORATADINE [Concomitant]
  12. LORTAB [Concomitant]

REACTIONS (19)
  - ASCITES [None]
  - CHEST PAIN [None]
  - CHILLS [None]
  - CHOLESTASIS [None]
  - DECREASED APPETITE [None]
  - DYSPNOEA EXERTIONAL [None]
  - FANCONI SYNDROME [None]
  - HEPATIC FAILURE [None]
  - HEPATIC STEATOSIS [None]
  - LACTIC ACIDOSIS [None]
  - OEDEMA PERIPHERAL [None]
  - ORTHOPNOEA [None]
  - PAIN IN EXTREMITY [None]
  - PANCREATITIS [None]
  - PORTAL HYPERTENSION [None]
  - PROSTATIC ABSCESS [None]
  - PROSTATITIS [None]
  - VISION BLURRED [None]
  - WEIGHT DECREASED [None]
